FAERS Safety Report 9120194 (Version 1)
Quarter: 2013Q1

REPORT INFORMATION
  Report Type: Spontaneous
  Country: US (occurrence: US)
  Receive Date: 20130226
  Receipt Date: 20130226
  Transmission Date: 20140127
  Serious: No
  Sender: FDA-Public Use
  Company Number: US-PFIZER INC-2013067980

PATIENT
  Age: 77 Year
  Sex: Male
  Weight: 73 kg

DRUGS (9)
  1. CELEBREX [Suspect]
     Indication: RHEUMATOID ARTHRITIS
     Dosage: 100 MG DAILY
     Dates: start: 2012
  2. LIPITOR [Suspect]
     Indication: BLOOD CHOLESTEROL INCREASED
     Dosage: 80 MG DAILY
  3. OMEPRAZOLE [Suspect]
     Indication: GASTROOESOPHAGEAL REFLUX DISEASE
     Dosage: 20 MG DAILY
  4. LOSARTAN [Suspect]
     Indication: CARDIAC DISORDER
     Dosage: 50 MG DAILY
  5. METOPROLOL TARTRATE [Suspect]
     Indication: CARDIAC DISORDER
     Dosage: 100 MG DAILY
  6. AMPHETAMINE [Suspect]
     Indication: RHEUMATOID ARTHRITIS
     Dosage: 50 MG, AS NEEDED
  7. ASPIRIN [Suspect]
     Indication: ANTICOAGULANT THERAPY
     Dosage: 81 MG DAILY
  8. AMBIEN [Suspect]
     Indication: SLEEP DISORDER
     Dosage: 5 MG, AS NEEDED
  9. FLONASE [Suspect]
     Indication: HYPERSENSITIVITY
     Dosage: 50 UG, AS NEEDED
     Route: 045

REACTIONS (1)
  - Oesophageal disorder [Not Recovered/Not Resolved]
